FAERS Safety Report 23286662 (Version 1)
Quarter: 2023Q4

REPORT INFORMATION
  Report Type: Spontaneous
  Country: US (occurrence: US)
  Receive Date: 20231212
  Receipt Date: 20231212
  Transmission Date: 20240110
  Serious: Yes (Death, Other)
  Sender: FDA-Public Use
  Company Number: US-JNJFOC-20231178226

PATIENT

DRUGS (4)
  1. IMBRUVICA [Suspect]
     Active Substance: IBRUTINIB
     Indication: Marginal zone lymphoma
     Route: 048
  2. LENALIDOMIDE [Suspect]
     Active Substance: LENALIDOMIDE
     Indication: Follicular lymphoma
     Route: 065
  3. LENALIDOMIDE [Suspect]
     Active Substance: LENALIDOMIDE
     Indication: Follicular lymphoma
     Route: 065
  4. RITUXIMAB [Suspect]
     Active Substance: RITUXIMAB
     Indication: Marginal zone lymphoma
     Dosage: 375 MG/M2 WEEKLY?IN CYCLE 1; DAY 1 CYCLES 2 12)
     Route: 065

REACTIONS (34)
  - Diarrhoea [Fatal]
  - Constipation [Unknown]
  - Cough [Unknown]
  - Dizziness [Unknown]
  - Mucosal inflammation [Unknown]
  - Vision blurred [Unknown]
  - Respiratory tract infection [Unknown]
  - Headache [Unknown]
  - Pruritus [Fatal]
  - Pneumonia [Fatal]
  - Neutropenia [Fatal]
  - Ventricular arrhythmia [Fatal]
  - Pneumonitis [Fatal]
  - COVID-19 pneumonia [Fatal]
  - Nausea [Unknown]
  - Chills [Unknown]
  - Dry skin [Unknown]
  - Rash maculo-papular [Fatal]
  - Rash [Fatal]
  - Dyspnoea [Fatal]
  - Fatigue [Fatal]
  - Fungal infection [Unknown]
  - Skin infection [Unknown]
  - Dry mouth [Unknown]
  - Pyrexia [Unknown]
  - Upper gastrointestinal haemorrhage [Fatal]
  - Atrial fibrillation [Fatal]
  - Myalgia [Unknown]
  - Anaemia [Fatal]
  - Leukopenia [Fatal]
  - Arthralgia [Unknown]
  - Oedema peripheral [Unknown]
  - Hypoaesthesia [Unknown]
  - Vomiting [Unknown]
